FAERS Safety Report 9274789 (Version 1)
Quarter: 2013Q2

REPORT INFORMATION
  Report Type: Spontaneous
  Country: US (occurrence: None)
  Receive Date: 20130429
  Receipt Date: 20130429
  Transmission Date: 20140414
  Serious: Yes (Hospitalization)
  Sender: FDA-Public Use
  Company Number: CABO-13002601

PATIENT
  Age: 44 Year
  Sex: Male
  Weight: 86 kg

DRUGS (13)
  1. COMETRIQ [Suspect]
     Indication: MEDULLARY THYROID CANCER
     Route: 048
     Dates: start: 20130309
  2. METFORMIN (METFORMIN) [Concomitant]
  3. ATENOLOL (ATENOLOL) [Concomitant]
  4. ALLOPURINOL [Concomitant]
  5. MAGNESIUM (MAGNESIUM) [Concomitant]
  6. MORPHINE [Concomitant]
  7. MIRTAZAPINE (MIRTAZAPINE) [Concomitant]
  8. ISOSORBIDE (ISOSORBIDE) [Concomitant]
  9. ZOFRAN (ONDANSETRON) [Concomitant]
  10. CHLORPROMAZINE (CHLORPROMAZINE) [Concomitant]
  11. SENNA LAXATIVE (SENNOSIDE A+B) [Concomitant]
  12. VITAMIN D (ERGOCALCIFEROL) [Concomitant]
  13. MONONITRATE (MONONITRATE) [Concomitant]

REACTIONS (7)
  - Urinary tract infection [None]
  - Dehydration [None]
  - Constipation [None]
  - Chromaturia [None]
  - Back pain [None]
  - Fatigue [None]
  - Oral discomfort [None]
